FAERS Safety Report 7319057-3 (Version None)
Quarter: 2011Q1

REPORT INFORMATION
  Report Type: 
  Country: None (occurrence: None)
  Receive Date: 20110228
  Receipt Date: 20100907
  Transmission Date: 20110831
  Serious: Yes (Other)
  Sender: FDA-Public Use
  Company Number: US-BAYER-201024611NA

PATIENT
  Sex: Female
  Weight: 70 kg

DRUGS (13)
  1. NECON [Concomitant]
  2. OCELLA [Suspect]
     Indication: PRODUCT USED FOR UNKNOWN INDICATION
     Dates: start: 20071201, end: 20071215
  3. YAZ [Suspect]
     Indication: ACNE
     Route: 048
     Dates: start: 20071201
  4. M.V.I. [Concomitant]
  5. TRAZODONE [Concomitant]
  6. YASMIN [Suspect]
     Indication: PRODUCT USED FOR UNKNOWN INDICATION
     Dates: start: 20071201, end: 20071215
  7. TOPAMAX [Concomitant]
     Dosage: DAILY
     Route: 048
  8. VITAMIN TAB [Concomitant]
  9. RELPAX [Concomitant]
  10. ASPIRIN [Concomitant]
     Dosage: 325 MG (DAILY DOSE), QD, ORAL
     Route: 048
  11. SOTRET [Concomitant]
  12. ALPRAZOLAM [Concomitant]
     Route: 048
  13. ZOLPIDEM [Concomitant]

REACTIONS (14)
  - PAIN [None]
  - SPEECH DISORDER [None]
  - HEARING IMPAIRED [None]
  - BLINDNESS [None]
  - HEMIANOPIA HOMONYMOUS [None]
  - VAGINAL HAEMORRHAGE [None]
  - ISCHAEMIC STROKE [None]
  - TRANSIENT ISCHAEMIC ATTACK [None]
  - MIGRAINE [None]
  - HEMIPARESIS [None]
  - DIPLOPIA [None]
  - BLINDNESS UNILATERAL [None]
  - VIITH NERVE PARALYSIS [None]
  - VISUAL FIELD DEFECT [None]
